FAERS Safety Report 16947571 (Version 2)
Quarter: 2019Q4

REPORT INFORMATION
  Report Type: Other
  Country: JP (occurrence: JP)
  Receive Date: 20191022
  Receipt Date: 20191204
  Transmission Date: 20200122
  Serious: Yes (Life-Threatening, Hospitalization)
  Sender: FDA-Public Use
  Company Number: JP-ALSI-201900419

PATIENT
  Age: 3 Year
  Sex: Male
  Weight: 12.3 kg

DRUGS (7)
  1. SEVOFLURANE. [Concomitant]
     Active Substance: SEVOFLURANE
  2. FENTANYL. [Concomitant]
     Active Substance: FENTANYL
  3. ROCURONIUM [Concomitant]
     Active Substance: ROCURONIUM BROMIDE
  4. PROPOFOL. [Concomitant]
     Active Substance: PROPOFOL
  5. NITRIC OXIDE. [Suspect]
     Active Substance: NITRIC OXIDE
  6. NITROUS OXIDE. [Suspect]
     Active Substance: NITROUS OXIDE
     Indication: ANALGESIC THERAPY
  7. MIDAZOLAM [Concomitant]
     Active Substance: MIDAZOLAM HYDROCHLORIDE

REACTIONS (4)
  - Prescribed overdose [Recovered/Resolved]
  - Pulmonary hypertensive crisis [Recovered/Resolved]
  - Circulatory collapse [Recovered/Resolved]
  - Off label use [Recovered/Resolved]
